FAERS Safety Report 7514111-5 (Version None)
Quarter: 2011Q2

REPORT INFORMATION
  Report Type: 
  Country: None (occurrence: None)
  Receive Date: 20110531
  Receipt Date: 20101102
  Transmission Date: 20111010
  Serious: No
  Sender: FDA-Public Use
  Company Number: US-BAYER-201039567NA

PATIENT
  Age: 80 Year
  Sex: Female

DRUGS (2)
  1. AVELOX [Suspect]
     Indication: PNEUMONIA
     Dosage: 400 MG, QD
     Dates: start: 20101001, end: 20101007
  2. AVELOX [Suspect]
     Dosage: 400 MG, QD
     Dates: start: 20101020, end: 20101026

REACTIONS (2)
  - DIARRHOEA [None]
  - OEDEMA PERIPHERAL [None]
